FAERS Safety Report 7960706-4 (Version None)
Quarter: 2011Q4

REPORT INFORMATION
  Report Type: 
  Country: None (occurrence: None)
  Receive Date: 20111206
  Receipt Date: 20111130
  Transmission Date: 20120403
  Serious: Yes (Other)
  Sender: FDA-Public Use
  Company Number: US-CELGENEUS-163-21880-11101947

PATIENT
  Age: 69 Year
  Sex: Female

DRUGS (10)
  1. AREDIA [Concomitant]
     Indication: MULTIPLE MYELOMA
     Dosage: 90 MILLIGRAM
     Route: 065
     Dates: start: 20080501
  2. CYANOCOBALAMIN [Concomitant]
     Dosage: 1000 MICROGRAM
     Route: 065
  3. HYDROCHLOROTHIAZIDE [Concomitant]
     Indication: HYPERTENSION
     Dosage: 25 MILLIGRAM
     Route: 065
     Dates: start: 20040301
  4. REVLIMID [Suspect]
     Indication: MULTIPLE MYELOMA
     Dosage: 25 MILLIGRAM
     Route: 048
     Dates: start: 20081001, end: 20090801
  5. REVLIMID [Suspect]
     Dosage: 10 MILLIGRAM
     Route: 048
     Dates: start: 20091001, end: 20110901
  6. CYANOCOBALAMIN [Concomitant]
     Indication: VITAMIN B12 DEFICIENCY
  7. PERCOCET [Concomitant]
     Indication: PAIN
     Dosage: 5/325 (1-2 )
     Route: 065
  8. REVLIMID [Suspect]
     Dosage: 5 MILLIGRAM
     Route: 048
     Dates: start: 20110101
  9. DECADRON [Concomitant]
     Indication: MULTIPLE MYELOMA
     Dosage: 20 MILLIGRAM
     Route: 065
     Dates: start: 20081001, end: 20110901
  10. KLOR-CON [Concomitant]
     Indication: HYPERTENSION
     Dosage: 20 MILLIEQUIVALENTS
     Route: 065
     Dates: start: 20071101

REACTIONS (2)
  - MALNUTRITION [None]
  - NEUROPATHY PERIPHERAL [None]
